FAERS Safety Report 4588853-8 (Version None)
Quarter: 2005Q1

REPORT INFORMATION
  Report Type: 
  Country: None (occurrence: None)
  Receive Date: 20050222
  Receipt Date: 20050217
  Transmission Date: 20050727
  Serious: Yes (Other)
  Sender: FDA-Public Use
  Company Number: D01200401585

PATIENT
  Age: 79 Year

DRUGS (4)
  1. FONDAPARINUX SODIUM [Suspect]
     Indication: MYOCARDIAL INFARCTION
     Dosage: 2.5MG PER DAY
     Route: 058
     Dates: start: 20040503, end: 20040503
  2. ASPIRIN [Concomitant]
  3. PLAVIX [Concomitant]
     Dosage: 75MG VARIABLE DOSE
     Route: 048
     Dates: start: 20040503, end: 20040504
  4. AGGRASTAT [Concomitant]
     Route: 042
     Dates: start: 20040503

REACTIONS (1)
  - CATHETER RELATED COMPLICATION [None]
